FAERS Safety Report 25463116 (Version 1)
Quarter: 2025Q2

REPORT INFORMATION
  Report Type: Spontaneous
  Country: SK (occurrence: SK)
  Receive Date: 20250620
  Receipt Date: 20250620
  Transmission Date: 20250717
  Serious: Yes (Hospitalization)
  Sender: ABBVIE
  Company Number: SK-ABBVIE-6333191

PATIENT
  Age: 21 Year
  Sex: Male

DRUGS (1)
  1. UPADACITINIB [Suspect]
     Active Substance: UPADACITINIB
     Indication: Dermatitis atopic
     Route: 048

REACTIONS (6)
  - Cardiovascular disorder [Unknown]
  - Protein total increased [Unknown]
  - Chest pain [Unknown]
  - Chest pain [Unknown]
  - Troponin increased [Unknown]
  - Myocarditis [Unknown]
